FAERS Safety Report 9670009 (Version 1)
Quarter: 2013Q4

REPORT INFORMATION
  Report Type: Spontaneous
  Country: IT (occurrence: CN)
  Receive Date: 20131105
  Receipt Date: 20131105
  Transmission Date: 20140711
  Serious: Yes (Hospitalization)
  Sender: FDA-Public Use
  Company Number: CN-FRI-1000050793

PATIENT
  Sex: Male

DRUGS (11)
  1. NEBIVOLOL [Suspect]
     Dosage: 5 MG
     Route: 048
     Dates: end: 201307
  2. BACTRIM [Suspect]
     Dosage: 400/80 MG
     Route: 048
     Dates: start: 201307, end: 201307
  3. PLAVIX [Suspect]
     Dosage: 75 MG
     Route: 048
     Dates: end: 201307
  4. ESOMEP [Suspect]
     Route: 048
     Dates: end: 201307
  5. ASPIRIN CARDIO [Suspect]
     Dosage: 100 MG
     Route: 048
     Dates: end: 201307
  6. MYFORTIC [Concomitant]
     Dosage: 1440 MG
     Route: 048
     Dates: end: 201307
  7. PROGRAF [Concomitant]
     Dosage: 1 MG
     Route: 048
  8. VALCYTE [Concomitant]
     Dosage: 1800 MG
     Route: 048
     Dates: end: 201307
  9. VALCYTE [Concomitant]
     Dosage: 1800 MG
     Route: 048
     Dates: start: 20130808
  10. ATARAX [Concomitant]
     Route: 048
  11. ATARAX [Concomitant]
     Dosage: 1800 MG
     Route: 048
     Dates: start: 20130808

REACTIONS (4)
  - Drug reaction with eosinophilia and systemic symptoms [Recovered/Resolved]
  - Rash [Recovered/Resolved]
  - Pyrexia [Recovered/Resolved]
  - Eosinophilia [Recovered/Resolved]
